FAERS Safety Report 8248598-X (Version None)
Quarter: 2012Q1

REPORT INFORMATION
  Report Type: 
  Country: None (occurrence: None)
  Receive Date: 20120330
  Receipt Date: 20120321
  Transmission Date: 20120608
  Serious: Yes (Hospitalization)
  Sender: FDA-Public Use
  Company Number: FR-ASTRAZENECA-2012SE19928

PATIENT
  Age: 19271 Day
  Sex: Male
  Weight: 90 kg

DRUGS (17)
  1. VANCOMYCIN [Suspect]
     Route: 041
     Dates: start: 20120102, end: 20120127
  2. ASPIRIN [Concomitant]
  3. ATARAX [Concomitant]
     Dates: start: 20111215, end: 20120130
  4. COLISTIN SULFATE [Suspect]
     Route: 041
     Dates: start: 20120102, end: 20120127
  5. CORDARONE [Concomitant]
  6. FERROUS FUMARATE [Concomitant]
     Dates: start: 20111215, end: 20120130
  7. OXEOL [Concomitant]
  8. FOLIC ACID [Concomitant]
     Dates: start: 20111215, end: 20120130
  9. FRAGMIN [Concomitant]
     Dates: start: 20111215, end: 20120130
  10. EUPRESSYL [Concomitant]
  11. VITAMINE B1 B6 [Concomitant]
     Dates: start: 20111215, end: 20120130
  12. NEXIUM [Suspect]
     Route: 048
     Dates: start: 20111215, end: 20120130
  13. LASIX [Concomitant]
  14. PERINDOPRIL ERBUMINE [Concomitant]
  15. UROKINASE [Concomitant]
     Indication: DEVICE OCCLUSION
     Dates: start: 20120120
  16. CIPROFLOXACIN [Suspect]
     Route: 048
     Dates: start: 20111213, end: 20120127
  17. ACETAMINOPHEN [Concomitant]
     Dates: start: 20120118

REACTIONS (1)
  - DRUG RASH WITH EOSINOPHILIA AND SYSTEMIC SYMPTOMS [None]
